FAERS Safety Report 24461486 (Version 1)
Quarter: 2024Q4

REPORT INFORMATION
  Report Type: Spontaneous
  Country: US (occurrence: None)
  Receive Date: 20241018
  Receipt Date: 20241018
  Transmission Date: 20250115
  Serious: Yes (Other)
  Sender: Public
  Company Number: None

PATIENT
  Age: 34 Year
  Sex: Female
  Weight: 74 kg

DRUGS (2)
  1. TYSABRI [Suspect]
     Active Substance: NATALIZUMAB
     Indication: Multiple sclerosis
  2. OXYTOCIN [Suspect]
     Active Substance: OXYTOCIN
     Indication: Retained placenta or membranes
     Dates: start: 20240918, end: 20240918

REACTIONS (5)
  - Exposure during pregnancy [None]
  - Maternal drugs affecting foetus [None]
  - Maternal condition affecting foetus [None]
  - Postpartum haemorrhage [None]
  - Transfusion [None]

NARRATIVE: CASE EVENT DATE: 20240918
